FAERS Safety Report 13336741 (Version 1)
Quarter: 2017Q1

REPORT INFORMATION
  Report Type: Spontaneous
  Country: US (occurrence: US)
  Receive Date: 20170314
  Receipt Date: 20170314
  Transmission Date: 20170428
  Serious: Yes (Other)
  Sender: FDA-Public Use
  Company Number: US-JAZZ-JPI-P-024546

PATIENT
  Age: 55 Year
  Sex: Female
  Weight: 76.36 kg

DRUGS (11)
  1. XYREM [Suspect]
     Active Substance: SODIUM OXYBATE
     Dosage: 4.5 G, BID
     Route: 048
     Dates: start: 20120916
  2. METOPROLOL TARTRATE. [Concomitant]
     Active Substance: METOPROLOL TARTRATE
     Indication: HYPERTENSION
     Dates: start: 2000
  3. KLOR-CON [Concomitant]
     Active Substance: POTASSIUM CHLORIDE
     Indication: MUSCLE SPASMS
  4. XYREM [Suspect]
     Active Substance: SODIUM OXYBATE
     Dosage: SINGLE (4.5GM OR 4.75GM 1ST DOSE/3.75GM 2ND DOSE)
     Route: 048
  5. TIZANIDINE. [Suspect]
     Active Substance: TIZANIDINE
     Indication: MUSCLE SPASMS
     Dosage: AS NEEDED
     Dates: start: 2005
  6. XYREM [Suspect]
     Active Substance: SODIUM OXYBATE
     Indication: NARCOLEPSY
     Route: 048
     Dates: start: 20120804, end: 20120815
  7. MULTIVITAMIN [Concomitant]
     Active Substance: VITAMINS
     Indication: PRODUCT USED FOR UNKNOWN INDICATION
  8. XYREM [Suspect]
     Active Substance: SODIUM OXYBATE
     Indication: CATAPLEXY
     Dosage: 3 G, BID
     Route: 048
     Dates: start: 20120816, end: 20120915
  9. AMPHETAMINE [Suspect]
     Active Substance: AMPHETAMINE
     Indication: PRODUCT USED FOR UNKNOWN INDICATION
     Dates: start: 2008
  10. GABAPENTIN. [Concomitant]
     Active Substance: GABAPENTIN
     Indication: NEURALGIA
     Dates: start: 1997
  11. KLOR-CON [Concomitant]
     Active Substance: POTASSIUM CHLORIDE
     Indication: BLOOD POTASSIUM DECREASED
     Dates: start: 201112

REACTIONS (26)
  - Delirium [Unknown]
  - Visual acuity reduced [Unknown]
  - Abnormal sleep-related event [Recovered/Resolved]
  - Disorientation [Unknown]
  - Weight decreased [Unknown]
  - Dysgeusia [Unknown]
  - Fall [Recovered/Resolved]
  - Lip discolouration [Unknown]
  - Thirst [Unknown]
  - Swelling face [Recovering/Resolving]
  - Headache [Unknown]
  - Formication [Unknown]
  - Confusional state [Recovered/Resolved]
  - Hypertension [Unknown]
  - Condition aggravated [Unknown]
  - Somnolence [Recovered/Resolved]
  - Ear swelling [Recovering/Resolving]
  - Malaise [Unknown]
  - Somnambulism [Recovered/Resolved]
  - Lip swelling [Recovering/Resolving]
  - Dry mouth [Not Recovered/Not Resolved]
  - Eye swelling [Unknown]
  - Somnolence [Not Recovered/Not Resolved]
  - Muscle spasms [Recovered/Resolved]
  - Vision blurred [Unknown]
  - Mental impairment [Recovered/Resolved]

NARRATIVE: CASE EVENT DATE: 201208
